FAERS Safety Report 5805840-X (Version None)
Quarter: 2008Q3

REPORT INFORMATION
  Report Type: 
  Country: None (occurrence: None)
  Receive Date: 20080708
  Receipt Date: 20080708
  Transmission Date: 20090109
  Serious: Yes (Hospitalization)
  Sender: FDA-Public Use
  Company Number: None

PATIENT
  Age: 78 Year
  Sex: Male
  Weight: 131 kg

DRUGS (1)
  1. INSULIN [Suspect]
     Dosage: 25 UNITS EVERY DAY SQ
     Route: 058
     Dates: start: 20071001, end: 20080423

REACTIONS (2)
  - HYPOGLYCAEMIA [None]
  - HYPOPHAGIA [None]
